FAERS Safety Report 12639189 (Version 1)
Quarter: 2016Q3

REPORT INFORMATION
  Report Type: Spontaneous
  Country: GB (occurrence: GB)
  Receive Date: 20160810
  Receipt Date: 20160810
  Transmission Date: 20161109
  Serious: Yes (Other)
  Sender: FDA-Public Use
  Company Number: GB-DEXPHARM-20161712

PATIENT
  Age: 43 Year
  Sex: Female

DRUGS (2)
  1. OMEPRAZOLE. [Suspect]
     Active Substance: OMEPRAZOLE
     Route: 048
  2. ARCOXIA [Suspect]
     Active Substance: ETORICOXIB
     Route: 048

REACTIONS (4)
  - Urticaria [Recovered/Resolved]
  - Presyncope [Recovered/Resolved]
  - Malaise [None]
  - Urticaria [None]
